FAERS Safety Report 8882299 (Version 4)
Quarter: 2013Q1

REPORT INFORMATION
  Report Type: Report from Study
  Country: DE (occurrence: DE)
  Receive Date: 20121102
  Receipt Date: 20130215
  Transmission Date: 20140127
  Serious: Yes (Death, Other)
  Sender: FDA-Public Use
  Company Number: DE-OTSUKA-EU-2012-10282

PATIENT
  Sex: Male
  Weight: 78 kg

DRUGS (7)
  1. SAMSCA [Suspect]
     Indication: INAPPROPRIATE ANTIDIURETIC HORMONE SECRETION
     Dosage: 7.5 MG MILLIGRAM(S), DAILY DOSE
     Route: 048
     Dates: start: 20120628, end: 20120628
  2. SAMSCA [Suspect]
     Indication: OFF LABEL USE
     Dosage: 30 MG MILLIGRAM(S), DAILY DOSE
     Route: 048
     Dates: start: 20120629, end: 20120629
  3. SAMSCA [Suspect]
     Dosage: 7.5 MG MILLIGRAM(S), DAILY DOSE
     Route: 048
     Dates: start: 20120702, end: 20120703
  4. PANTOPRAZOL [Concomitant]
     Indication: GASTROOESOPHAGEAL REFLUX DISEASE
     Dosage: 40 MG MILLIGRAM(S), DAILY DOSE
     Route: 048
     Dates: start: 20120627
  5. DEXAMETHASONE [Concomitant]
     Indication: HEMIANOPIA HETERONYMOUS
     Dosage: 80 MG MILLIGRAM(S), DAILY DOSE
     Route: 048
     Dates: start: 20120627
  6. LEVOTHYROXINE [Concomitant]
     Indication: HYPOTHYROIDISM
     Dosage: 75 MCG, DAILY DOSE
     Route: 048
     Dates: start: 20120625
  7. GLUCOSE [Concomitant]
     Dosage: 2500 ML MILLILITRE(S), UNKNOWN
     Route: 042

REACTIONS (5)
  - Craniopharyngioma [Fatal]
  - Rapid correction of hyponatraemia [Recovered/Resolved]
  - Wrong technique in drug usage process [Unknown]
  - Accidental overdose [Unknown]
  - Off label use [Unknown]
